FAERS Safety Report 9555490 (Version 1)
Quarter: 2013Q3

REPORT INFORMATION
  Report Type: Spontaneous
  Country: US (occurrence: None)
  Receive Date: 20130906
  Receipt Date: 20130906
  Transmission Date: 20140515
  Serious: Yes (Other)
  Sender: FDA-Public Use
  Company Number: 163-POMAL-13081495

PATIENT
  Age: 95 Year
  Sex: Female
  Weight: 49.9 kg

DRUGS (1)
  1. POMALYST [Suspect]
     Indication: PLASMA CELL MYELOMA
     Dosage: 3 MG, 21 IN 28 D, PO
     Route: 048
     Dates: start: 201306

REACTIONS (4)
  - Plasma cell myeloma [None]
  - Weight decreased [None]
  - Fatigue [None]
  - Abnormal behaviour [None]
